FAERS Safety Report 10201289 (Version 1)
Quarter: 2014Q2

REPORT INFORMATION
  Report Type: Spontaneous
  Country: US (occurrence: US)
  Receive Date: 20140528
  Receipt Date: 20140528
  Transmission Date: 20141212
  Serious: No
  Sender: FDA-Public Use
  Company Number: US-ASTRAZENECA-2014SE35002

PATIENT
  Age: 32 Year
  Sex: Female
  Weight: 117 kg

DRUGS (11)
  1. NEXIUM [Suspect]
     Indication: GASTROOESOPHAGEAL REFLUX DISEASE
     Route: 048
  2. NEXIUM [Suspect]
     Indication: GASTROOESOPHAGEAL REFLUX DISEASE
     Route: 048
     Dates: start: 20140518
  3. LAMOTRIGINE [Concomitant]
     Indication: CONVULSION
  4. TOPAMATE [Concomitant]
     Indication: CONVULSION
  5. CYCLOBENZAPRINE [Concomitant]
     Indication: MUSCLE RELAXANT THERAPY
  6. CLONAZEPAM [Concomitant]
     Indication: ANXIETY
  7. PROZAC [Concomitant]
     Indication: DEPRESSION
  8. DEPRO PROVERA SHOTS [Concomitant]
     Dosage: NR NR
  9. IMITREX [Concomitant]
     Indication: HEADACHE
     Dosage: UNK PRN
  10. ALBUTEROL INHALER [Concomitant]
     Dosage: UNK 2 PUFFS PRN
  11. PROTONIX [Concomitant]
     Dates: start: 20140506

REACTIONS (3)
  - Dyspepsia [Unknown]
  - Abdominal pain upper [Unknown]
  - Intentional product misuse [Unknown]
